FAERS Safety Report 6072773-6 (Version None)
Quarter: 2009Q1

REPORT INFORMATION
  Report Type: 
  Country: None (occurrence: None)
  Receive Date: 20090210
  Receipt Date: 20090129
  Transmission Date: 20090719
  Serious: Yes (Death)
  Sender: FDA-Public Use
  Company Number: US-ELI_LILLY_AND_COMPANY-US200901004166

PATIENT
  Age: 55 Year
  Sex: Female

DRUGS (10)
  1. CYMBALTA [Suspect]
     Indication: BIPOLAR I DISORDER
  2. TRILEPTAL [Concomitant]
     Dosage: 900 MG, UNK
  3. XANAX [Concomitant]
  4. AMBIEN [Concomitant]
  5. ALDACTONE [Concomitant]
  6. COREG [Concomitant]
  7. K-DUR [Concomitant]
  8. LANOXIN [Concomitant]
  9. ACCUPRIL [Concomitant]
  10. LIPITOR [Concomitant]

REACTIONS (3)
  - COMPLETED SUICIDE [None]
  - DEPRESSION [None]
  - MYOCARDIAL INFARCTION [None]
